FAERS Safety Report 5012324-8 (Version None)
Quarter: 2006Q2

REPORT INFORMATION
  Report Type: 
  Country: None (occurrence: None)
  Receive Date: 20060404
  Receipt Date: 20060103
  Transmission Date: 20061013
  Serious: No
  Sender: FDA-Public Use
  Company Number: US200601000405

PATIENT
  Age: 29 Year
  Sex: Female

DRUGS (1)
  1. CYMBALTA [Suspect]
     Indication: GASTROINTESTINAL MOTILITY DISORDER
     Dosage: 30 MG, DAILY (1/D)
     Dates: start: 20051101

REACTIONS (5)
  - ASTHENIA [None]
  - DIZZINESS [None]
  - INSOMNIA [None]
  - MENSTRUAL DISORDER [None]
  - TREMOR [None]
